FAERS Safety Report 23843231 (Version 3)
Quarter: 2024Q3

REPORT INFORMATION
  Report Type: Report from Study
  Country: BR (occurrence: BR)
  Receive Date: 20240510
  Receipt Date: 20240926
  Transmission Date: 20241016
  Serious: Yes (Other)
  Sender: PFIZER
  Company Number: BR-PFIZER INC-PV202300040921

PATIENT
  Sex: Male
  Weight: 68 kg

DRUGS (4)
  1. ELRANATAMAB [Suspect]
     Active Substance: ELRANATAMAB
     Indication: Plasma cell myeloma refractory
     Dosage: 1ST DOSE OF STEP-UP
     Dates: start: 20230220
  2. ELRANATAMAB [Suspect]
     Active Substance: ELRANATAMAB
     Dosage: 2ND STEP-UP DOSE
  3. ELRANATAMAB [Suspect]
     Active Substance: ELRANATAMAB
     Dosage: 76 MG
  4. ELRANATAMAB [Suspect]
     Active Substance: ELRANATAMAB
     Dosage: UNK
     Dates: end: 20240521

REACTIONS (4)
  - Myalgia [Unknown]
  - Cytokine release syndrome [Recovered/Resolved]
  - Pneumonia [Unknown]
  - Cancer pain [Unknown]
